FAERS Safety Report 8226769-6 (Version None)
Quarter: 2012Q1

REPORT INFORMATION
  Report Type: 
  Country: None (occurrence: None)
  Receive Date: 20120322
  Receipt Date: 20120314
  Transmission Date: 20120608
  Serious: Yes (Hospitalization)
  Sender: FDA-Public Use
  Company Number: US-BAYER-201031234NA

PATIENT
  Age: 41 Year
  Sex: Female
  Weight: 88.435 kg

DRUGS (5)
  1. DICLOFENAC SODIUM [Concomitant]
     Dosage: 75 MG, BID
  2. YASMIN [Suspect]
     Indication: ENDOMETRIOSIS
     Dosage: UNK
     Route: 048
     Dates: start: 20050222, end: 20050523
  3. VICODIN [Concomitant]
  4. ZETIA [Concomitant]
  5. LIPITOR [Concomitant]
     Indication: BLOOD CHOLESTEROL INCREASED
     Dosage: 20 MG, CONT
     Dates: start: 20040101

REACTIONS (4)
  - DEEP VEIN THROMBOSIS [None]
  - PULMONARY EMBOLISM [None]
  - SWELLING [None]
  - PAIN [None]
